FAERS Safety Report 5948246-5 (Version None)
Quarter: 2008Q4

REPORT INFORMATION
  Report Type: 
  Country: None (occurrence: None)
  Receive Date: 20081110
  Receipt Date: 20081110
  Transmission Date: 20090506
  Serious: Yes (Disabling)
  Sender: FDA-Public Use
  Company Number: None

PATIENT
  Sex: Female
  Weight: 74.8435 kg

DRUGS (3)
  1. RESTASIS [Suspect]
     Indication: EYE PAIN
     Dosage: ONE DROP IN EACH EYE TWICE A DAY
     Dates: start: 20081030, end: 20081108
  2. RESTASIS [Suspect]
     Indication: EYE PRURITUS
     Dosage: ONE DROP IN EACH EYE TWICE A DAY
     Dates: start: 20081030, end: 20081108
  3. RESTASIS [Suspect]
     Indication: OCULAR HYPERAEMIA
     Dosage: ONE DROP IN EACH EYE TWICE A DAY
     Dates: start: 20081030, end: 20081108

REACTIONS (4)
  - BLOOD PRESSURE SYSTOLIC INCREASED [None]
  - DYSPNOEA [None]
  - FEELING ABNORMAL [None]
  - HEART RATE INCREASED [None]
